FAERS Safety Report 6458661-1 (Version None)
Quarter: 2009Q4

REPORT INFORMATION
  Report Type: 
  Country: None (occurrence: None)
  Receive Date: 20091127
  Receipt Date: 20091116
  Transmission Date: 20100525
  Serious: Yes (Life-Threatening, Hospitalization, Other)
  Sender: FDA-Public Use
  Company Number: CL-JNJFOC-20091104794

PATIENT
  Age: 10 Month
  Sex: Female

DRUGS (3)
  1. TOPAMAX [Suspect]
     Indication: EPILEPSY
     Route: 048
  2. LEVETIRACETAM [Concomitant]
     Route: 065
  3. VITAMIN [Concomitant]
     Route: 065

REACTIONS (4)
  - APNOEA [None]
  - CONVULSION [None]
  - METABOLIC ACIDOSIS [None]
  - OFF LABEL USE [None]
